FAERS Safety Report 4806790-8 (Version None)
Quarter: 2005Q4

REPORT INFORMATION
  Report Type: 
  Country: None (occurrence: None)
  Receive Date: 20051021
  Receipt Date: 20051021
  Transmission Date: 20060501
  Serious: No
  Sender: FDA-Public Use
  Company Number: None

PATIENT
  Age: 2 Year
  Sex: Male

DRUGS (2)
  1. HYDROCORTISONE [Suspect]
     Dosage: POWDER
  2. ACID MANTLE CREAM [Suspect]
     Dosage: GRAM (CREAM/SOLID)

REACTIONS (3)
  - HAIR GROWTH ABNORMAL [None]
  - MEDICATION ERROR [None]
  - PHARMACEUTICAL PRODUCT COMPLAINT [None]
